FAERS Safety Report 11854844 (Version 1)
Quarter: 2015Q4

REPORT INFORMATION
  Report Type: Report from Study
  Country: ID (occurrence: ID)
  Receive Date: 20151221
  Receipt Date: 20151221
  Transmission Date: 20160305
  Serious: Yes (Death)
  Sender: FDA-Public Use
  Company Number: ID-ROCHE-1680284

PATIENT
  Sex: Female

DRUGS (1)
  1. BONDRONAT [Suspect]
     Active Substance: IBANDRONIC ACID
     Indication: METASTASES TO BONE
     Route: 065
     Dates: start: 20130926

REACTIONS (1)
  - Death [Fatal]
